FAERS Safety Report 4975080-5 (Version None)
Quarter: 2006Q2

REPORT INFORMATION
  Report Type: 
  Country: None (occurrence: None)
  Receive Date: 20060418
  Receipt Date: 20060407
  Transmission Date: 20061013
  Serious: Yes (Hospitalization)
  Sender: FDA-Public Use
  Company Number: 2006UW06205

PATIENT
  Age: 14 Year
  Sex: Female

DRUGS (4)
  1. PULMICORT [Suspect]
     Indication: ASTHMA
     Route: 055
     Dates: start: 20060314
  2. BENYLIN 1 ALL IN ONE COLD AND FLU DAY [Suspect]
     Indication: NASOPHARYNGITIS
     Route: 048
     Dates: start: 20060314
  3. BENYLIN 1 ALL IN ONE COLD AND FLU DAY [Suspect]
     Indication: PYREXIA
     Route: 048
     Dates: start: 20060314
  4. VENTOLIN [Concomitant]
     Indication: ASTHMA
     Dates: start: 20060314

REACTIONS (3)
  - CONVULSION [None]
  - COUGH [None]
  - PYREXIA [None]
